FAERS Safety Report 9954919 (Version 1)
Quarter: 2014Q1

REPORT INFORMATION
  Report Type: Report from Study
  Country: US (occurrence: US)
  Receive Date: 20140304
  Receipt Date: 20140304
  Transmission Date: 20141002
  Serious: No
  Sender: FDA-Public Use
  Company Number: US-ABBVIE-13P-163-1077680-00

PATIENT
  Age: 33 Year
  Sex: Female

DRUGS (7)
  1. HUMIRA [Suspect]
     Indication: CROHN^S DISEASE
     Dates: start: 20130312
  2. PRILOSEC (OTC) [Concomitant]
     Indication: GASTROOESOPHAGEAL REFLUX DISEASE
  3. ATIVAN [Concomitant]
     Indication: ANXIETY
  4. BENTYL [Concomitant]
     Indication: GASTROINTESTINAL MOTILITY DISORDER
  5. MULTIVITAMIN [Concomitant]
     Indication: PRODUCT USED FOR UNKNOWN INDICATION
  6. ZZZQUIL [Concomitant]
     Indication: INSOMNIA
  7. TYLENOL PM [Concomitant]
     Indication: INSOMNIA

REACTIONS (2)
  - Injection site pain [Not Recovered/Not Resolved]
  - Tinea infection [Not Recovered/Not Resolved]
